FAERS Safety Report 23533036 (Version 1)
Quarter: 2024Q1

REPORT INFORMATION
  Report Type: Spontaneous
  Country: FR (occurrence: FR)
  Receive Date: 20240216
  Receipt Date: 20240216
  Transmission Date: 20240410
  Serious: Yes (Hospitalization, Other)
  Sender: FDA-Public Use
  Company Number: FR-BoehringerIngelheim-2024-BI-008735

PATIENT
  Age: 57 Year
  Sex: Male
  Weight: 68.8 kg

DRUGS (1)
  1. PRADAXA [Suspect]
     Active Substance: DABIGATRAN ETEXILATE MESYLATE
     Indication: Anticoagulant therapy
     Dates: end: 202310

REACTIONS (2)
  - Therapeutic product effect prolonged [Recovered/Resolved]
  - Heart valve incompetence [Unknown]

NARRATIVE: CASE EVENT DATE: 20231022
